FAERS Safety Report 7405618-X (Version None)
Quarter: 2011Q2

REPORT INFORMATION
  Report Type: 
  Country: None (occurrence: None)
  Receive Date: 20110411
  Receipt Date: 20110401
  Transmission Date: 20111010
  Serious: Yes (Hospitalization)
  Sender: FDA-Public Use
  Company Number: JP-TYCO HEALTHCARE/MALLINCKRODT-T201100664

PATIENT
  Sex: Female
  Weight: 54.3 kg

DRUGS (9)
  1. FERROMIA                           /00023516/ [Suspect]
     Dosage: 50 MG, QD
     Dates: start: 20110325
  2. TALIZER [Concomitant]
     Dosage: 100 MG, QD
  3. ADONA                              /00056903/ [Concomitant]
     Dosage: 90 MG, TID
  4. CHLOMY-P [Concomitant]
     Dosage: UNK, QD
     Dates: start: 20110323
  5. FUROSEMID                          /00032601/ [Concomitant]
     Dosage: 40 MG, QD
  6. METHADONE [Suspect]
     Indication: CANCER PAIN
     Dosage: 45 MG, QD
     Route: 048
     Dates: start: 20100114
  7. OXYNORM [Concomitant]
     Dosage: 30 MG, PRN
  8. CELCOX [Concomitant]
     Dosage: 200 MG, BID
  9. TRANSAMIN [Concomitant]
     Dosage: 750 MG, TID

REACTIONS (1)
  - GENITAL HAEMORRHAGE [None]
